FAERS Safety Report 18139606 (Version 5)
Quarter: 2021Q2

REPORT INFORMATION
  Report Type: Spontaneous
  Country: US (occurrence: US)
  Receive Date: 20200812
  Receipt Date: 20210608
  Transmission Date: 20210717
  Serious: No
  Sender: FDA-Public Use
  Company Number: US-PFIZER INC-2020309521

PATIENT
  Age: 66 Year
  Sex: Female

DRUGS (6)
  1. LYRICA [Suspect]
     Active Substance: PREGABALIN
     Dosage: 50 MG, 3X/DAY (1 CAP (50MG) BY MOUTH IN THE MORNING, NOON, AND EVENING)
     Route: 048
  2. LYRICA [Suspect]
     Active Substance: PREGABALIN
     Dosage: 100 MG, 1X/DAY (100 MG, 1X/DAY (2 CAPS (100MG) AT BEDTIME)
     Route: 048
  3. PREGABALIN. [Suspect]
     Active Substance: PREGABALIN
     Indication: NEURALGIA
     Dosage: 50 MG, 3X/DAY (50MG/50MG/50MG)
     Route: 048
     Dates: start: 20200707, end: 202007
  4. PREGABALIN. [Suspect]
     Active Substance: PREGABALIN
     Dosage: 200 MG, DAILY (INCREASE TO 50MG/50MG/100MG)
     Route: 048
     Dates: start: 20200709
  5. LYRICA [Suspect]
     Active Substance: PREGABALIN
     Dosage: 500 MG, DAILY (TAKE 1 CAPSULE BY MOUTH IN THE MORNING, NOON, AND IN EVENING. TAKE 2 CAPSULES BY MOUT
     Route: 048
  6. LYRICA [Suspect]
     Active Substance: PREGABALIN
     Indication: NEURALGIA
     Dosage: 250 MG, DAILY (INCREASED LYRICA TO 50/50/50/100 MG)
     Route: 048
     Dates: start: 20200713

REACTIONS (5)
  - Memory impairment [Unknown]
  - Phantom limb syndrome [Unknown]
  - Arthralgia [Unknown]
  - Drug ineffective [Unknown]
  - Pain [Unknown]

NARRATIVE: CASE EVENT DATE: 20200709
